FAERS Safety Report 7788968-7 (Version None)
Quarter: 2011Q3

REPORT INFORMATION
  Report Type: 
  Country: None (occurrence: None)
  Receive Date: 20110930
  Receipt Date: 20110923
  Transmission Date: 20111222
  Serious: Yes (Hospitalization)
  Sender: FDA-Public Use
  Company Number: PHHO2009AU08807

PATIENT
  Sex: Male
  Weight: 83.4 kg

DRUGS (12)
  1. MOTILIUM [Concomitant]
  2. PERINDOPRIL ERBUMINE [Concomitant]
     Indication: HYPERTENSION
  3. PLAVIX [Concomitant]
  4. ALLOPURINOL [Concomitant]
  5. INDAPAMIDE W/PERINDOPRIL [Concomitant]
     Indication: HYPERTENSION
  6. ARGININE [Concomitant]
     Indication: ANGINA PECTORIS
  7. CALCIUM CARBONATE [Concomitant]
  8. IVABRADINE [Concomitant]
     Indication: ANGINA PECTORIS
  9. LERCANIDIPINE [Concomitant]
  10. NICORANDIL [Concomitant]
     Indication: ANGINA PECTORIS
  11. IMATINIB MESYLATE [Suspect]
     Indication: CHRONIC MYELOID LEUKAEMIA
     Dosage: 600MG
     Route: 048
     Dates: start: 20090622
  12. VITAMIN D [Concomitant]

REACTIONS (30)
  - CONCOMITANT DISEASE PROGRESSION [None]
  - LUNG CONSOLIDATION [None]
  - BREATH SOUNDS ABNORMAL [None]
  - ANAEMIA [None]
  - PALPITATIONS [None]
  - ACUTE MYOCARDIAL INFARCTION [None]
  - CORONARY ARTERY DISEASE [None]
  - HEADACHE [None]
  - DYSPNOEA [None]
  - ANGINA PECTORIS [None]
  - ABDOMINAL TENDERNESS [None]
  - HYPERHIDROSIS [None]
  - CORONARY ARTERY OCCLUSION [None]
  - RENAL IMPAIRMENT [None]
  - ABDOMINAL DISCOMFORT [None]
  - PLEURAL EFFUSION [None]
  - CHEST PAIN [None]
  - FALL [None]
  - CORONARY ARTERY STENOSIS [None]
  - ACUTE PULMONARY OEDEMA [None]
  - MYOCARDIAL ISCHAEMIA [None]
  - HAEMATOCHEZIA [None]
  - GASTRITIS [None]
  - MALAISE [None]
  - TROPONIN INCREASED [None]
  - GASTRIC ULCER [None]
  - DIZZINESS [None]
  - COUGH [None]
  - CREPITATIONS [None]
  - CHEST DISCOMFORT [None]
